FAERS Safety Report 5504022-9 (Version None)
Quarter: 2007Q4

REPORT INFORMATION
  Report Type: 
  Country: None (occurrence: None)
  Receive Date: 20071101
  Receipt Date: 20071030
  Transmission Date: 20080405
  Serious: Yes (Death)
  Sender: FDA-Public Use
  Company Number: US-MERCK-0708USA04693

PATIENT
  Sex: Male

DRUGS (2)
  1. ZOLINZA [Suspect]
     Indication: MYCOSIS FUNGOIDES
     Route: 048
  2. ZOLINZA [Suspect]
     Route: 048

REACTIONS (2)
  - DYSGEUSIA [None]
  - MYOCARDIAL INFARCTION [None]
